FAERS Safety Report 6758522-4 (Version None)
Quarter: 2010Q2

REPORT INFORMATION
  Report Type: 
  Country: None (occurrence: None)
  Receive Date: 20100607
  Receipt Date: 20100527
  Transmission Date: 20101027
  Serious: Yes (Disabling)
  Sender: FDA-Public Use
  Company Number: B0652750A

PATIENT
  Sex: Female

DRUGS (2)
  1. LAMICTAL [Suspect]
     Indication: EPILEPSY
     Dosage: 25MG TWICE PER DAY
     Route: 048
     Dates: start: 20100409, end: 20100419
  2. DEPAKENE [Concomitant]
     Indication: EPILEPSY
     Dosage: 400MG PER DAY
     Route: 048
     Dates: start: 20081117

REACTIONS (11)
  - BLISTER [None]
  - DRUG ERUPTION [None]
  - ENANTHEMA [None]
  - ERYTHEMA MULTIFORME [None]
  - HYPERAEMIA [None]
  - LIP EROSION [None]
  - OCULAR HYPERAEMIA [None]
  - OCULOMUCOCUTANEOUS SYNDROME [None]
  - OEDEMA MOUTH [None]
  - PANCYTOPENIA [None]
  - RASH [None]
